FAERS Safety Report 5797950-0 (Version None)
Quarter: 2008Q3

REPORT INFORMATION
  Report Type: 
  Country: None (occurrence: None)
  Receive Date: 20080702
  Receipt Date: 20080617
  Transmission Date: 20090109
  Serious: Yes (Death, Life-Threatening, Hospitalization, Other)
  Sender: FDA-Public Use
  Company Number: DE-AMGEN-UK287991

PATIENT
  Sex: Male
  Weight: 98 kg

DRUGS (12)
  1. ARANESP [Suspect]
     Indication: RENAL FAILURE CHRONIC
     Route: 042
     Dates: start: 20030501, end: 20040916
  2. SOTALOL HCL [Concomitant]
     Dates: start: 20020101, end: 20041014
  3. METOPROLOL SUCCINATE [Concomitant]
     Dates: start: 20000101, end: 20020101
  4. FELODIPINE [Concomitant]
  5. IRBESARTAN [Concomitant]
  6. DEKRISTOL [Concomitant]
  7. ANTI-PHOSPHAT [Concomitant]
     Dates: end: 20041014
  8. VITARENAL [Concomitant]
  9. DIAZEPAM [Concomitant]
     Route: 048
  10. AMPHOTERICIN B [Concomitant]
  11. DIGITOXIN INJ [Concomitant]
     Route: 048
  12. METOPROLOL SUCCINATE [Concomitant]
     Dates: start: 20041001

REACTIONS (18)
  - AORTIC ANEURYSM RUPTURE [None]
  - ATRIAL FIBRILLATION [None]
  - BONE MARROW TOXICITY [None]
  - FATIGUE [None]
  - GRANULOCYTOPENIA [None]
  - HAEMORRHAGIC DIATHESIS [None]
  - HYPOKALAEMIA [None]
  - HYPOTENSION [None]
  - MUCOSAL HAEMORRHAGE [None]
  - MYELODYSPLASTIC SYNDROME [None]
  - NERVOUS SYSTEM DISORDER [None]
  - OPERATIVE HAEMORRHAGE [None]
  - PAIN [None]
  - PANCYTOPENIA [None]
  - RETROPERITONEAL HAEMATOMA [None]
  - SHOCK [None]
  - THROMBOCYTOPENIA [None]
  - VITAMIN B12 ABNORMAL [None]
